FAERS Safety Report 9513289 (Version 1)
Quarter: 2013Q3

REPORT INFORMATION
  Report Type: Spontaneous
  Country: US (occurrence: US)
  Receive Date: 20130910
  Receipt Date: 20130910
  Transmission Date: 20140515
  Serious: Yes (Hospitalization, Other)
  Sender: FDA-Public Use
  Company Number: US-ACTAVIS-2013-15623

PATIENT
  Age: 57 Year
  Sex: Female

DRUGS (3)
  1. PHENYTOIN (AMALLC) [Suspect]
     Indication: CONVULSION
     Dosage: UNK
     Route: 065
  2. DEXAMETHASONE (WATSON LABORATORIES) [Suspect]
     Indication: CONVULSION
     Dosage: UNK
     Route: 065
  3. LEVETIRACETAM [Concomitant]
     Indication: CONVULSION
     Dosage: UNK
     Route: 065

REACTIONS (3)
  - Thrombocytopenia [Recovered/Resolved]
  - Drug interaction [Recovered/Resolved]
  - Rash generalised [Unknown]
